FAERS Safety Report 9397368 (Version 1)
Quarter: 2013Q3

REPORT INFORMATION
  Report Type: Report from Study
  Country: US (occurrence: US)
  Receive Date: 20130712
  Receipt Date: 20130712
  Transmission Date: 20140515
  Serious: No
  Sender: FDA-Public Use
  Company Number: PHEH2013US014695

PATIENT
  Age: 73 Year
  Sex: Male

DRUGS (8)
  1. TASIGNA [Suspect]
     Indication: CHRONIC MYELOID LEUKAEMIA
     Dosage: 400 MG, BID
     Route: 048
     Dates: start: 20121127
  2. BISOPROLOL [Concomitant]
  3. FOLIC ACID [Concomitant]
  4. GLEEVEC [Concomitant]
  5. NORVASC [Concomitant]
     Dosage: UNK
  6. ISOSORBIDE [Concomitant]
  7. OMEPRAZOLE [Concomitant]
  8. PLAVIX [Concomitant]

REACTIONS (2)
  - Lacrimation increased [Not Recovered/Not Resolved]
  - Rhinorrhoea [Not Recovered/Not Resolved]
